FAERS Safety Report 4572472-3 (Version None)
Quarter: 2005Q1

REPORT INFORMATION
  Report Type: 
  Country: None (occurrence: None)
  Receive Date: 20050207
  Receipt Date: 20050126
  Transmission Date: 20050727
  Serious: Yes (Hospitalization)
  Sender: FDA-Public Use
  Company Number: CA-MERCK-0501CAN00125

PATIENT
  Age: 73 Year
  Sex: Male

DRUGS (10)
  1. PROSCAR [Suspect]
     Indication: BENIGN PROSTATIC HYPERPLASIA
     Route: 048
     Dates: start: 20040610
  2. TAMSULOSIN HYDROCHLORIDE [Suspect]
     Indication: BENIGN PROSTATIC HYPERPLASIA
     Route: 048
     Dates: start: 20040610
  3. DONEPEZIL HYDROCHLORIDE [Concomitant]
     Indication: DEMENTIA ALZHEIMER'S TYPE
     Route: 065
     Dates: start: 20030901
  4. HYDROCHLOROTHIAZIDE [Concomitant]
     Indication: HYPERTENSION
     Route: 065
     Dates: start: 20030901
  5. RAMIPRIL [Concomitant]
     Indication: HYPERTENSION
     Route: 065
     Dates: start: 20030901
  6. METOPROLOL [Concomitant]
     Indication: HYPERTENSION
     Route: 065
     Dates: start: 20030901
  7. RISEDRONATE SODIUM [Concomitant]
     Indication: OSTEOPOROSIS
     Route: 065
     Dates: start: 20030901
  8. TIOTROPIUM BROMIDE [Concomitant]
     Indication: ASTHMA
     Route: 065
  9. ALBUTEROL [Concomitant]
     Indication: ASTHMA
     Route: 065
  10. OXYBUTYNIN [Concomitant]
     Indication: URINARY INCONTINENCE
     Route: 065

REACTIONS (7)
  - BLOOD CREATININE INCREASED [None]
  - DEHYDRATION [None]
  - DEMENTIA [None]
  - PROTEUS INFECTION [None]
  - SEPSIS [None]
  - URINARY TRACT INFECTION [None]
  - URINARY TRACT OBSTRUCTION [None]
